FAERS Safety Report 7054701-X (Version None)
Quarter: 2010Q4

REPORT INFORMATION
  Report Type: 
  Country: None (occurrence: None)
  Receive Date: 20101015
  Receipt Date: 20100930
  Transmission Date: 20110411
  Serious: Yes (Other)
  Sender: FDA-Public Use
  Company Number: 20100472

PATIENT
  Age: 83 Year
  Sex: Male

DRUGS (8)
  1. VENOFER [Suspect]
     Indication: ANAEMIA
     Dosage: 500 UG/DILUTION ; 4 HOURS INTRAVENOUS DRIP
     Route: 041
     Dates: start: 20100916, end: 20100916
  2. FLOMAX [Concomitant]
  3. LASIX [Concomitant]
  4. METOPROLOL [Concomitant]
  5. VITAMIN B COMPLEX WITH C [Concomitant]
  6. VITAMIN D [Concomitant]
  7. ORAL IRON [Concomitant]
  8. AMLODIPINE [Concomitant]

REACTIONS (9)
  - CHILLS [None]
  - CONFUSIONAL STATE [None]
  - COUGH [None]
  - DISORIENTATION [None]
  - FEELING OF BODY TEMPERATURE CHANGE [None]
  - GAIT DISTURBANCE [None]
  - INFUSION RELATED REACTION [None]
  - PYREXIA [None]
  - THINKING ABNORMAL [None]
